FAERS Safety Report 5902724-3 (Version None)
Quarter: 2008Q3

REPORT INFORMATION
  Report Type: 
  Country: None (occurrence: None)
  Receive Date: 20080929
  Receipt Date: 20080929
  Transmission Date: 20090109
  Serious: Yes (Life-Threatening, Hospitalization)
  Sender: FDA-Public Use
  Company Number: None

PATIENT
  Age: 74 Year
  Sex: Female
  Weight: 58.0604 kg

DRUGS (4)
  1. ALENDRONATE SODIUM [Suspect]
     Indication: OSTEOPOROSIS
     Dosage: (1) TAB (1) PER WEEK MOUTH
     Route: 048
     Dates: start: 20080825
  2. ALENDRONATE SODIUM [Suspect]
     Indication: OSTEOPOROSIS
     Dosage: (1) TAB (1) PER WEEK MOUTH
     Route: 048
     Dates: start: 20080901
  3. ALENDRONATE SODIUM [Suspect]
     Indication: OSTEOPOROSIS
     Dosage: (1) TAB (1) PER WEEK MOUTH
     Route: 048
     Dates: start: 20080908
  4. ALENDRONATE SODIUM [Suspect]
     Indication: OSTEOPOROSIS
     Dosage: (1) TAB (1) PER WEEK MOUTH
     Route: 048
     Dates: start: 20080915

REACTIONS (3)
  - BACK PAIN [None]
  - MOBILITY DECREASED [None]
  - PAIN IN EXTREMITY [None]
